FAERS Safety Report 16553548 (Version 1)
Quarter: 2019Q3

REPORT INFORMATION
  Report Type: Spontaneous
  Country: FR (occurrence: FR)
  Receive Date: 20190710
  Receipt Date: 20190710
  Transmission Date: 20191004
  Serious: Yes (Other)
  Sender: FDA-Public Use
  Company Number: FR-MYLANLABS-2019M1063806

PATIENT
  Age: 43 Year
  Sex: Male

DRUGS (4)
  1. GANCICLOVIR. [Concomitant]
     Active Substance: GANCICLOVIR
     Indication: HERPES SIMPLEX
     Route: 061
  2. TRIFLURIDINE. [Concomitant]
     Active Substance: TRIFLURIDINE
     Indication: HERPES SIMPLEX
     Route: 061
  3. ACICLOVIR [Suspect]
     Active Substance: ACYCLOVIR
     Indication: HERPES SIMPLEX
     Route: 048
  4. VALACICLOVIR [Suspect]
     Active Substance: VALACYCLOVIR HYDROCHLORIDE
     Indication: HERPES SIMPLEX
     Route: 048

REACTIONS (1)
  - Drug resistance [Unknown]
